FAERS Safety Report 4908954-1 (Version None)
Quarter: 2006Q1

REPORT INFORMATION
  Report Type: 
  Country: None (occurrence: None)
  Receive Date: 20060209
  Receipt Date: 20060130
  Transmission Date: 20060701
  Serious: Yes (Hospitalization)
  Sender: FDA-Public Use
  Company Number: 2006014326

PATIENT
  Age: 63 Year
  Sex: Female
  Weight: 56.246 kg

DRUGS (2)
  1. ROGAINE [Suspect]
     Indication: ALOPECIA
     Dosage: ONE ML ONCE DAILY, TOPICAL
     Route: 061
     Dates: start: 20050101, end: 20060104
  2. SUDAFED SINUS (PARACETAMOL, PSEUDOEPHEDRINE) [Suspect]
     Indication: HEADACHE
     Dosage: 1 TABLET PRN, ORAL
     Route: 048
     Dates: start: 20020101, end: 20060104

REACTIONS (4)
  - ANKLE FRACTURE [None]
  - HEART RATE INCREASED [None]
  - HERPES ZOSTER [None]
  - LOSS OF CONSCIOUSNESS [None]
